FAERS Safety Report 17852300 (Version 1)
Quarter: 2020Q2

REPORT INFORMATION
  Report Type: Spontaneous
  Country: ES (occurrence: ES)
  Receive Date: 20200602
  Receipt Date: 20200602
  Transmission Date: 20200714
  Serious: Yes (Hospitalization)
  Sender: FDA-Public Use
  Company Number: NVSC2020ES152560

PATIENT
  Age: 97 Year
  Sex: Female

DRUGS (3)
  1. DEPRAX (TRAZODONE HYDROCHLORIDE) [Suspect]
     Active Substance: TRAZODONE HYDROCHLORIDE
     Indication: PRODUCT USED FOR UNKNOWN INDICATION
     Dosage: 50 MG, QD
     Route: 048
     Dates: start: 2019, end: 20191014
  2. ZEBINIX [Suspect]
     Active Substance: ESLICARBAZEPINE ACETATE
     Indication: POST STROKE EPILEPSY
     Dosage: 800 MG, QD
     Route: 048
     Dates: start: 20190625, end: 20191014
  3. QUETIAPINE. [Suspect]
     Active Substance: QUETIAPINE
     Indication: AGITATION
     Dosage: 12.5 MG, QD
     Route: 050
     Dates: start: 2019, end: 20191014

REACTIONS (3)
  - Confusional state [Recovered/Resolved]
  - Hyponatraemia [Recovering/Resolving]
  - Inappropriate antidiuretic hormone secretion [Recovered/Resolved]

NARRATIVE: CASE EVENT DATE: 20191007
